FAERS Safety Report 16547979 (Version 1)
Quarter: 2019Q3

REPORT INFORMATION
  Report Type: Spontaneous
  Country: US (occurrence: US)
  Receive Date: 20190709
  Receipt Date: 20190709
  Transmission Date: 20191004
  Serious: No
  Sender: FDA-Public Use
  Company Number: US-ASTELLAS-2019US015139

PATIENT
  Age: 85 Year
  Sex: Female

DRUGS (1)
  1. MYRBETRIQ [Suspect]
     Active Substance: MIRABEGRON
     Indication: PRODUCT USED FOR UNKNOWN INDICATION
     Dosage: 50 MG DAILY, CUT IN HALF TO MAKE IT 25 MG
     Route: 065

REACTIONS (5)
  - Nasopharyngitis [Unknown]
  - Wrong technique in product usage process [Unknown]
  - Arthritis [Unknown]
  - Arthralgia [Unknown]
  - Dyspnoea [Unknown]
